FAERS Safety Report 8255330-2 (Version None)
Quarter: 2012Q2

REPORT INFORMATION
  Report Type: 
  Country: None (occurrence: None)
  Receive Date: 20120403
  Receipt Date: 20120329
  Transmission Date: 20120825
  Serious: Yes (Hospitalization)
  Sender: FDA-Public Use
  Company Number: US-JNJFOC-20120400487

PATIENT
  Age: 66 Year
  Sex: Female

DRUGS (11)
  1. TYLENOL [Concomitant]
  2. XARELTO [Suspect]
     Indication: KNEE OPERATION
     Route: 048
  3. LASIX [Concomitant]
  4. MULTI-VITAMINS [Concomitant]
  5. XANAX [Concomitant]
  6. SIMVASTATIN [Concomitant]
  7. CALCIUM CARBONATE [Concomitant]
  8. XARELTO [Suspect]
     Indication: PROPHYLAXIS
     Route: 048
  9. HYDROCODONE BITARTRATE [Concomitant]
  10. ZOLOFT [Concomitant]
  11. AMBIEN [Concomitant]

REACTIONS (2)
  - ISCHAEMIC STROKE [None]
  - MYOCARDIAL INFARCTION [None]
